FAERS Safety Report 8304860 (Version 5)
Quarter: 2014Q2

REPORT INFORMATION
  Report Type: Report from Study
  Country: US (occurrence: US)
  Receive Date: 20111221
  Receipt Date: 20140411
  Transmission Date: 20141212
  Serious: Yes (Life-Threatening, Hospitalization)
  Sender: FDA-Public Use
  Company Number: PHHO2011US019223

PATIENT
  Sex: Male
  Weight: 115.31 kg

DRUGS (8)
  1. ACZ885 [Suspect]
     Indication: CARDIOVASCULAR EVENT PROPHYLAXIS
     Dosage: 150 MG, UNK
     Route: 058
     Dates: start: 20111025, end: 20111025
  2. LISINOPRIL [Concomitant]
     Indication: HYPERTENSION
     Dosage: 2.5 MG, QD
     Dates: start: 20100905
  3. BYSTOLIC [Concomitant]
     Indication: HYPERTENSION
     Dosage: 2.5 MG, QD
     Dates: start: 20100927
  4. ZOCOR [Concomitant]
     Dosage: 40 MG, QHS
  5. SIMVASTATIN [Concomitant]
     Indication: DYSLIPIDAEMIA
     Dosage: 40 MG, QD
     Dates: start: 20100905
  6. EFFIENT [Concomitant]
     Indication: CARDIOVASCULAR EVENT PROPHYLAXIS
     Dosage: 10 MG, QD
     Dates: start: 20100906
  7. NIASPAN [Concomitant]
     Indication: DYSLIPIDAEMIA
     Dosage: 1000 MG, QD
     Dates: start: 20110927
  8. ASPIRIN [Concomitant]
     Indication: CARDIOVASCULAR EVENT PROPHYLAXIS
     Dosage: 81 MG, QD
     Dates: start: 20101115

REACTIONS (3)
  - Sepsis [Recovered/Resolved]
  - Cellulitis [Recovered/Resolved]
  - Beta haemolytic streptococcal infection [Recovered/Resolved]
